FAERS Safety Report 26105456 (Version 1)
Quarter: 2025Q4

REPORT INFORMATION
  Report Type: Report from Study
  Country: US (occurrence: US)
  Receive Date: 20251201
  Receipt Date: 20251201
  Transmission Date: 20260118
  Serious: Yes (Other)
  Sender: ABBVIE
  Company Number: US-ABBVIE-6567791

PATIENT
  Sex: Female

DRUGS (1)
  1. SKYRIZI [Suspect]
     Active Substance: RISANKIZUMAB-RZAA
     Indication: Psoriatic arthropathy
     Route: 058
     Dates: start: 20230119

REACTIONS (6)
  - Cerebrovascular accident [Recovered/Resolved]
  - Musculoskeletal chest pain [Unknown]
  - Nephrolithiasis [Recovered/Resolved]
  - Nerve injury [Not Recovered/Not Resolved]
  - Ulcer [Recovering/Resolving]
  - Stress [Unknown]
